FAERS Safety Report 6539817-6 (Version None)
Quarter: 2010Q1

REPORT INFORMATION
  Report Type: 
  Country: None (occurrence: None)
  Receive Date: 20100115
  Receipt Date: 20100108
  Transmission Date: 20100710
  Serious: Yes (Disabling)
  Sender: FDA-Public Use
  Company Number: GB-PFIZER INC-2008091425

PATIENT
  Age: 60 Year
  Sex: Male

DRUGS (3)
  1. IRINOTECAN HCL [Suspect]
     Indication: RECTAL CANCER
     Dosage: 350 MG/M2, UNK
     Route: 042
     Dates: start: 20080509, end: 20080919
  2. OXALIPLATIN [Suspect]
     Indication: GASTROINTESTINAL CARCINOMA
     Dosage: 240 NG, UNK
     Dates: start: 20070101
  3. CAPECITABINE [Concomitant]
     Indication: GASTROINTESTINAL CARCINOMA
     Dates: start: 20070101

REACTIONS (1)
  - NEUROPATHY PERIPHERAL [None]
